FAERS Safety Report 21875511 (Version 2)
Quarter: 2023Q1

REPORT INFORMATION
  Report Type: Other
  Country: CA (occurrence: None)
  Receive Date: 20230118
  Receipt Date: 20230124
  Transmission Date: 20230418
  Serious: Yes (Hospitalization)
  Sender: FDA-Public Use
  Company Number: CA-ROCHE-3265302

PATIENT
  Age: 63 Year
  Sex: Male

DRUGS (6)
  1. CEFTRIAXONE [Suspect]
     Active Substance: CEFTRIAXONE
     Indication: COVID-19
     Route: 065
  2. TOCILIZUMAB [Suspect]
     Active Substance: TOCILIZUMAB
     Indication: COVID-19
     Route: 065
  3. FLUCONAZOLE [Suspect]
     Active Substance: FLUCONAZOLE
     Indication: Fungal oesophagitis
     Route: 065
  4. METHYLPREDNISOLONE [Suspect]
     Active Substance: METHYLPREDNISOLONE
     Indication: COVID-19
     Route: 042
  5. METHYLPREDNISOLONE [Suspect]
     Active Substance: METHYLPREDNISOLONE
     Route: 042
  6. PREDNISONE [Suspect]
     Active Substance: PREDNISONE
     Indication: COVID-19
     Route: 048

REACTIONS (14)
  - Candida infection [Recovered/Resolved]
  - Deep vein thrombosis [Recovered/Resolved]
  - Drug ineffective [Unknown]
  - Empyema [Recovered/Resolved]
  - Fungal oesophagitis [Recovered/Resolved]
  - Mycotic endophthalmitis [Recovered/Resolved]
  - Off label use [Unknown]
  - Pleural effusion [Recovered/Resolved]
  - Pseudomonal bacteraemia [Recovered/Resolved]
  - Pseudomonas infection [Recovered/Resolved]
  - Retinitis [Recovered/Resolved]
  - Staphylococcal infection [Recovered/Resolved]
  - Urinary tract infection [Recovered/Resolved]
  - Vitritis [Recovered/Resolved]
